FAERS Safety Report 16976048 (Version 1)
Quarter: 2019Q4

REPORT INFORMATION
  Report Type: Spontaneous
  Country: US (occurrence: US)
  Receive Date: 20190914
  Receipt Date: 20190914
  Transmission Date: 20200122
  Serious: No
  Sender: FDA-Public Use
  Company Number: None

PATIENT
  Age: 64 Year
  Sex: Female

DRUGS (2)
  1. KISQALI [Suspect]
     Active Substance: RIBOCICLIB
     Route: 048
     Dates: start: 20190909
  2. LETROZOLE. [Concomitant]
     Active Substance: LETROZOLE

REACTIONS (4)
  - Dizziness [None]
  - Night sweats [None]
  - Muscle spasms [None]
  - Presyncope [None]

NARRATIVE: CASE EVENT DATE: 20190909
